FAERS Safety Report 8561298 (Version 2)
Quarter: 2012Q4

REPORT INFORMATION
  Report Type: 
  Country: JP (occurrence: JP)
  Receive Date: 20120514
  Receipt Date: 20121212
  Transmission Date: 20130627
  Serious: No
  Sender: FDA-Public Use
  Company Number: JP-PFIZER INC-2012112395

PATIENT
  Age: 69 Year
  Sex: Female

DRUGS (4)
  1. AZULFIDINE [Suspect]
     Indication: RHEUMATOID ARTHRITIS
     Dosage: 1000 mg/day
     Route: 048
     Dates: start: 20050204, end: 20120423
  2. RIMATIL [Suspect]
     Indication: RA
     Dosage: 200 mg daily
     Route: 048
     Dates: start: 20060510, end: 20120423
  3. RISEDRONATE SODIUM [Suspect]
     Dosage: 17.5 mg, weekly
     Route: 048
  4. MUCOSTA [Concomitant]
     Dosage: 100 mg, 3x/day
     Route: 048

REACTIONS (1)
  - Drug eruption [Recovering/Resolving]
